FAERS Safety Report 10238052 (Version 3)
Quarter: 2015Q3

REPORT INFORMATION
  Report Type: Other
  Country: US (occurrence: US)
  Receive Date: 20140616
  Receipt Date: 20150721
  Transmission Date: 20151125
  Serious: Yes (Hospitalization, Other)
  Sender: FDA-Public Use
  Company Number: US-SHIRE-US201402898

PATIENT
  Age: 55 Year
  Sex: Male
  Weight: 147.39 kg

DRUGS (3)
  1. CINRYZE [Suspect]
     Active Substance: HUMAN C1-ESTERASE INHIBITOR
     Indication: HEREDITARY ANGIOEDEMA
     Dosage: UNK (1000 UNITS), 1X/WEEK
     Route: 042
     Dates: start: 20100704, end: 2014
  2. CINRYZE [Suspect]
     Active Substance: HUMAN C1-ESTERASE INHIBITOR
     Indication: PROPHYLAXIS
     Dosage: UNK UNK, 1X/DAY:QD
     Route: 042
     Dates: start: 20140605, end: 20140618
  3. CINRYZE [Suspect]
     Active Substance: HUMAN C1-ESTERASE INHIBITOR
     Dosage: UNK (1000 UNITS), 1X/WEEK
     Route: 042
     Dates: start: 201406

REACTIONS (5)
  - Localised oedema [Unknown]
  - Heart rate irregular [Unknown]
  - Inappropriate schedule of drug administration [Not Recovered/Not Resolved]
  - Cerebrovascular accident [Unknown]
  - Peripheral swelling [Unknown]

NARRATIVE: CASE EVENT DATE: 20100704
